FAERS Safety Report 4475618-0 (Version None)
Quarter: 2004Q3

REPORT INFORMATION
  Report Type: 
  Country: None (occurrence: None)
  Receive Date: 20040923
  Receipt Date: 20040714
  Transmission Date: 20050211
  Serious: No
  Sender: FDA-Public Use
  Company Number: USA040772537

PATIENT
  Age: 79 Year
  Sex: Female
  Weight: 86 kg

DRUGS (6)
  1. FORTEO [Suspect]
     Indication: OSTEOPOROSIS
     Dates: start: 20040630
  2. DESFERAL (DEFEROXAMINE MESILATE) [Concomitant]
  3. VIACTIV [Concomitant]
  4. VITAMIN A [Concomitant]
  5. VITAMIN D [Concomitant]
  6. GLUCOSAMINE SULFATE [Concomitant]

REACTIONS (7)
  - BACK PAIN [None]
  - FEAR [None]
  - HEADACHE [None]
  - HYPERTENSION [None]
  - MUSCLE SPASMS [None]
  - PAIN [None]
  - WHOLE BLOOD TRANSFUSION [None]
